FAERS Safety Report 5567734-7 (Version None)
Quarter: 2007Q4

REPORT INFORMATION
  Report Type: 
  Country: None (occurrence: None)
  Receive Date: 20071205
  Receipt Date: 20071203
  Transmission Date: 20080405
  Serious: Yes (Hospitalization)
  Sender: FDA-Public Use
  Company Number: IG488

PATIENT
  Age: 2 Day
  Sex: Female
  Weight: 3.1 kg

DRUGS (4)
  1. FLEBOGAMMA 5% DIF [Suspect]
     Indication: ABO INCOMPATIBILITY
     Dosage: 1 DOSE; IV
     Route: 042
  2. PHOTOTHERAPHY [Concomitant]
  3. ANTIBIOTICS [Concomitant]
  4. RED BLOOD CELLS CONCENTRATE TRANSFUSIONS [Concomitant]

REACTIONS (10)
  - ABDOMINAL DISTENSION [None]
  - ABO HAEMOLYTIC DISEASE OF NEWBORN [None]
  - COLONIC STENOSIS [None]
  - IRRITABILITY [None]
  - JAUNDICE NEONATAL [None]
  - NECROTISING ENTEROCOLITIS NEONATAL [None]
  - PAIN [None]
  - PNEUMATOSIS INTESTINALIS [None]
  - SEPSIS NEONATAL [None]
  - VOMITING NEONATAL [None]
